FAERS Safety Report 17460390 (Version 1)
Quarter: 2020Q1

REPORT INFORMATION
  Report Type: Spontaneous
  Country: GB (occurrence: GB)
  Receive Date: 20200225
  Receipt Date: 20200225
  Transmission Date: 20200409
  Serious: Yes (Other)
  Sender: FDA-Public Use
  Company Number: GB-SUN PHARMACEUTICAL INDUSTRIES LTD-2020R1-237597

PATIENT
  Age: 53 Year
  Sex: Female

DRUGS (2)
  1. INFLIXIMAB [Suspect]
     Active Substance: INFLIXIMAB
     Indication: HEPATITIS
     Dosage: 5 MG/KG
     Route: 065
  2. PREDNISONE. [Suspect]
     Active Substance: PREDNISONE
     Indication: HEPATITIS
     Dosage: 60 MILLIGRAM, QD
     Route: 065

REACTIONS (5)
  - Rhinitis [Unknown]
  - Myalgia [Unknown]
  - Therapy partial responder [Unknown]
  - Hepatic fibrosis [Unknown]
  - Decreased appetite [Unknown]
